FAERS Safety Report 16774423 (Version 1)
Quarter: 2019Q3

REPORT INFORMATION
  Report Type: Spontaneous
  Country: SE (occurrence: SE)
  Receive Date: 20190905
  Receipt Date: 20190905
  Transmission Date: 20191005
  Serious: Yes (Hospitalization)
  Sender: FDA-Public Use
  Company Number: SE-TEVA-2019-SE-1101137

PATIENT
  Age: 82 Year
  Sex: Female

DRUGS (15)
  1. SPARKAL [Concomitant]
     Active Substance: AMILORIDE HYDROCHLORIDE
  2. PREDNISOLON [Concomitant]
     Active Substance: PREDNISOLONE
  3. GABAPENTIN. [Suspect]
     Active Substance: GABAPENTIN
     Indication: NEURALGIA
     Dosage: 900 MG
     Route: 048
     Dates: start: 20190326, end: 20190626
  4. METOTAB [Concomitant]
     Active Substance: METHOTREXATE SODIUM
  5. FENTANYL TRANSDERMAL SYSTEM [Concomitant]
     Active Substance: FENTANYL
  6. FURIX [Concomitant]
  7. FOLSYRA [Concomitant]
  8. ZOPIKLON [Concomitant]
     Active Substance: ZOPICLONE
  9. OMEPRAZOL [Concomitant]
     Active Substance: OMEPRAZOLE
  10. ALENDRONAT [Concomitant]
     Active Substance: ALENDRONATE SODIUM
  11. SOBRIL [Concomitant]
     Active Substance: OXAZEPAM
  12. CANODERM 5 % [Concomitant]
  13. BEHEPAN [Concomitant]
  14. LETROZOLE. [Concomitant]
     Active Substance: LETROZOLE
  15. KALCIPOS-D FORTE [Concomitant]
     Active Substance: CALCIUM CARBONATE\CHOLECALCIFEROL

REACTIONS (1)
  - Confusional state [Recovering/Resolving]

NARRATIVE: CASE EVENT DATE: 20190624
